FAERS Safety Report 5085981-8 (Version None)
Quarter: 2006Q3

REPORT INFORMATION
  Report Type: 
  Country: None (occurrence: None)
  Receive Date: 20060817
  Receipt Date: 20060802
  Transmission Date: 20061208
  Serious: Yes (Other)
  Sender: FDA-Public Use
  Company Number: 2006096084

PATIENT
  Age: 80 Year
  Sex: Female
  Weight: 40.8 kg

DRUGS (3)
  1. METHYLPREDNISOLONE [Suspect]
     Indication: OPTIC NEUROPATHY
     Dosage: INTRAVENOUS
     Route: 042
     Dates: start: 20040130, end: 20040101
  2. KENACORT [Concomitant]
  3. LIPLE (ALPROSTADIL) [Concomitant]

REACTIONS (13)
  - ACTIVATED PARTIAL THROMBOPLASTIN TIME SHORTENED [None]
  - BLINDNESS [None]
  - DISEASE PROGRESSION [None]
  - HYPOAESTHESIA [None]
  - MUSCULAR WEAKNESS [None]
  - MYELOPATHY [None]
  - OPTIC ATROPHY [None]
  - PAPILLOEDEMA [None]
  - PROTHROMBIN TIME SHORTENED [None]
  - RETINAL VASCULAR DISORDER [None]
  - THROMBOSIS [None]
  - VASCULITIS [None]
  - VOMITING [None]
